FAERS Safety Report 18730311 (Version 1)
Quarter: 2021Q1

REPORT INFORMATION
  Report Type: Spontaneous
  Country: US (occurrence: US)
  Receive Date: 20210112
  Receipt Date: 20210112
  Transmission Date: 20210419
  Serious: No
  Sender: FDA-Public Use
  Company Number: None

PATIENT
  Age: 69 Year
  Sex: Female

DRUGS (5)
  1. AZITHROMYCIN ANHYDROUS. [Concomitant]
     Active Substance: AZITHROMYCIN ANHYDROUS
     Dates: start: 20201210
  2. AUTMENTIN [Concomitant]
     Dates: start: 20201210
  3. ONDANSETRON [Concomitant]
     Active Substance: ONDANSETRON
     Dates: start: 20201212, end: 20201212
  4. BAMLANIVIMAB. [Suspect]
     Active Substance: BAMLANIVIMAB
     Indication: COVID-19
     Dosage: ?          OTHER FREQUENCY:ONE TIME;?
     Route: 041
     Dates: start: 20201212, end: 20201212
  5. PREDNISONE. [Concomitant]
     Active Substance: PREDNISONE
     Dates: start: 20201210

REACTIONS (4)
  - Heart rate irregular [None]
  - Heart rate decreased [None]
  - Electrocardiogram abnormal [None]
  - Ventricular extrasystoles [None]

NARRATIVE: CASE EVENT DATE: 20201212
